FAERS Safety Report 24986668 (Version 1)
Quarter: 2025Q1

REPORT INFORMATION
  Report Type: Spontaneous
  Country: US (occurrence: US)
  Receive Date: 20250219
  Receipt Date: 20250219
  Transmission Date: 20250409
  Serious: No
  Sender: GLAXOSMITHKLINE
  Company Number: US-GSK-US2025GSK015412

PATIENT

DRUGS (1)
  1. WELLBUTRIN XL [Suspect]
     Active Substance: BUPROPION HYDROCHLORIDE
     Indication: Product used for unknown indication
     Dates: start: 2024

REACTIONS (5)
  - Oral discomfort [Recovered/Resolved]
  - Pain in jaw [Recovered/Resolved]
  - Oral pain [Recovered/Resolved]
  - Oral pruritus [Recovered/Resolved]
  - Hypersensitivity [Recovered/Resolved]
